FAERS Safety Report 6604532-7 (Version None)
Quarter: 2010Q1

REPORT INFORMATION
  Report Type: 
  Country: None (occurrence: None)
  Receive Date: 20100226
  Receipt Date: 20091113
  Transmission Date: 20100710
  Serious: No
  Sender: FDA-Public Use
  Company Number: A0816994A

PATIENT
  Age: 48 Year
  Sex: Male

DRUGS (4)
  1. LAMICTAL CD [Suspect]
     Indication: BIPOLAR DISORDER
     Dosage: 25MG TWICE PER DAY
     Route: 048
     Dates: start: 20080801
  2. WELLBUTRIN [Concomitant]
     Route: 048
  3. TRAMADOL HCL [Concomitant]
  4. TRAZODONE HCL [Concomitant]

REACTIONS (3)
  - PRURITUS [None]
  - RASH [None]
  - TREATMENT NONCOMPLIANCE [None]
